FAERS Safety Report 5957584-1 (Version None)
Quarter: 2008Q4

REPORT INFORMATION
  Report Type: 
  Country: None (occurrence: None)
  Receive Date: 20081117
  Receipt Date: 20081117
  Transmission Date: 20090506
  Serious: Yes (Other)
  Sender: FDA-Public Use
  Company Number: None

PATIENT
  Sex: Male
  Weight: 102.0593 kg

DRUGS (1)
  1. CIALIS; 20 MG; LILLY ICOS, LLC. (ELI LILLY + CO.) CIALIS IS ACTUALLY T [Suspect]
     Indication: ERECTILE DYSFUNCTION
     Dosage: 20 MG. ONE DAILY (I ONLY TOOK ONE) ORAL
     Route: 048
     Dates: start: 20080101

REACTIONS (1)
  - PENILE PAIN [None]
